FAERS Safety Report 8052851-2 (Version None)
Quarter: 2012Q1

REPORT INFORMATION
  Report Type: 
  Country: None (occurrence: None)
  Receive Date: 20120117
  Receipt Date: 20120117
  Transmission Date: 20120608
  Serious: Yes (Hospitalization)
  Sender: FDA-Public Use
  Company Number: None

PATIENT
  Sex: Female
  Weight: 48.18 kg

DRUGS (3)
  1. FEMARA [Suspect]
     Dosage: 42.5 MG
     Dates: end: 20120105
  2. ZOLOFT [Concomitant]
  3. ABILIFY [Concomitant]

REACTIONS (6)
  - CONDITION AGGRAVATED [None]
  - BRONCHITIS [None]
  - NO THERAPEUTIC RESPONSE [None]
  - RESPIRATORY DISTRESS [None]
  - CHRONIC OBSTRUCTIVE PULMONARY DISEASE [None]
  - ORTHOPNOEA [None]
